FAERS Safety Report 7056405-6 (Version None)
Quarter: 2010Q4

REPORT INFORMATION
  Report Type: 
  Country: None (occurrence: None)
  Receive Date: 20101021
  Receipt Date: 20101012
  Transmission Date: 20110411
  Serious: Yes (Hospitalization)
  Sender: FDA-Public Use
  Company Number: FR-GENENTECH-308168

PATIENT
  Sex: Female

DRUGS (30)
  1. MABTHERA [Suspect]
     Indication: MANTLE CELL LYMPHOMA
     Dosage: 750 MG, X1
     Route: 042
     Dates: start: 20100614, end: 20100614
  2. CISPLATIN [Suspect]
     Indication: MANTLE CELL LYMPHOMA
     Dosage: 200 MG, UNK
     Route: 042
     Dates: start: 20100614, end: 20100614
  3. ARACYTINE [Suspect]
     Indication: MANTLE CELL LYMPHOMA
     Dosage: 2 G, BID
     Route: 042
     Dates: start: 20100614, end: 20100614
  4. GLUCOPHAGE [Suspect]
     Indication: PRODUCT USED FOR UNKNOWN INDICATION
     Dosage: UNK
     Route: 048
     Dates: end: 20100627
  5. NOVONORM [Suspect]
     Indication: PRODUCT USED FOR UNKNOWN INDICATION
     Dosage: .5 MG, QAM
     Route: 048
     Dates: end: 20100627
  6. ACTRAPID [Concomitant]
     Indication: PRODUCT USED FOR UNKNOWN INDICATION
     Dosage: UNK
  7. ACTRAPID [Concomitant]
     Dosage: UNK
  8. TAHOR [Concomitant]
     Indication: PRODUCT USED FOR UNKNOWN INDICATION
     Dosage: UNK
  9. LEVOTHYROXINE SODIUM [Concomitant]
     Indication: PRODUCT USED FOR UNKNOWN INDICATION
     Dosage: UNK
  10. XYZAL [Concomitant]
     Indication: PRODUCT USED FOR UNKNOWN INDICATION
     Dosage: UNK
  11. XYZAL [Concomitant]
     Dosage: UNK
  12. CYMBALTA [Concomitant]
     Indication: PRODUCT USED FOR UNKNOWN INDICATION
     Dosage: UNK
  13. CYMBALTA [Concomitant]
     Dosage: UNK
  14. OGASTORO [Concomitant]
     Indication: PRODUCT USED FOR UNKNOWN INDICATION
     Dosage: UNK
  15. OGASTORO [Concomitant]
     Dosage: UNK
  16. VERATRAN [Concomitant]
     Indication: PRODUCT USED FOR UNKNOWN INDICATION
     Dosage: UNK
  17. VERATRAN [Concomitant]
     Dosage: UNK
  18. CARBOSYLANE [Concomitant]
     Indication: PRODUCT USED FOR UNKNOWN INDICATION
     Dosage: UNK
  19. CARBOSYLANE [Concomitant]
     Dosage: UNK
  20. DIFFU K [Concomitant]
     Indication: PRODUCT USED FOR UNKNOWN INDICATION
     Dosage: UNK
  21. DIFFU K [Concomitant]
     Dosage: UNK
  22. METOCLOPRAMIDE [Concomitant]
     Indication: PREMEDICATION
     Dosage: UNK
     Dates: start: 20100614
  23. ONDANSETRON [Concomitant]
     Indication: PREMEDICATION
     Dosage: UNK
     Dates: start: 20100614
  24. FUROSEMIDE [Concomitant]
     Indication: PREMEDICATION
     Dosage: UNK
     Dates: start: 20100614
  25. FUNGIZONE [Concomitant]
     Indication: PREMEDICATION
     Dosage: UNK
     Dates: start: 20100614
  26. PARACETAMOL [Concomitant]
     Indication: PREMEDICATION
     Dosage: UNK
     Dates: start: 20100614
  27. LACTULOSE [Concomitant]
     Indication: PREMEDICATION
     Dosage: UNK
     Dates: start: 20100614
  28. PANTOPRAZOLE [Concomitant]
     Indication: PREMEDICATION
     Dosage: UNK
     Dates: start: 20100614
  29. ESOMEPRAZOLE [Concomitant]
     Indication: PREMEDICATION
     Dosage: UNK
     Dates: start: 20100614
  30. INIPOMP [Concomitant]
     Indication: PRODUCT USED FOR UNKNOWN INDICATION
     Dosage: UNK

REACTIONS (2)
  - RENAL FAILURE ACUTE [None]
  - THROMBOCYTOPENIA [None]
